FAERS Safety Report 17321001 (Version 1)
Quarter: 2020Q1

REPORT INFORMATION
  Report Type: Spontaneous
  Country: CO (occurrence: CO)
  Receive Date: 20200126
  Receipt Date: 20200126
  Transmission Date: 20200409
  Serious: Yes (Other)
  Sender: FDA-Public Use
  Company Number: CO-BRISTOL-MYERS SQUIBB COMPANY-BMS-2020-004986

PATIENT
  Sex: Female
  Weight: 81 kg

DRUGS (3)
  1. COUMADIN [Suspect]
     Active Substance: WARFARIN SODIUM
     Indication: ANTICOAGULANT THERAPY
     Route: 065
  2. COUMADIN [Suspect]
     Active Substance: WARFARIN SODIUM
     Indication: ANTIPHOSPHOLIPID SYNDROME
     Dosage: 7.5 MILLIGRAM QD (1 AND HALF TABLETS(5 MG); SPLITS ONE TABLET IN A HALF AS PRESCRIBED BY PHYSICIAN)
     Route: 048
     Dates: end: 201912
  3. EUTIROX [Concomitant]
     Active Substance: LEVOTHYROXINE SODIUM
     Indication: PRODUCT USED FOR UNKNOWN INDICATION
     Dosage: 150 MICROGRAM, QD
     Route: 065

REACTIONS (3)
  - Off label use [Unknown]
  - International normalised ratio fluctuation [Recovered/Resolved]
  - Thrombophlebitis [Recovered/Resolved]
